FAERS Safety Report 12860518 (Version 1)
Quarter: 2016Q4

REPORT INFORMATION
  Report Type: Spontaneous
  Country: US (occurrence: US)
  Receive Date: 20161019
  Receipt Date: 20161019
  Transmission Date: 20170207
  Serious: No
  Sender: FDA-Public Use
  Company Number: US-TEVA-699787USA

PATIENT
  Age: 80 Year
  Sex: Female
  Weight: 63.56 kg

DRUGS (8)
  1. FISH OIL [Concomitant]
     Active Substance: FISH OIL
  2. FLECAINIDE [Concomitant]
     Active Substance: FLECAINIDE
     Indication: HEART RATE ABNORMAL
  3. VALIUM [Concomitant]
     Active Substance: DIAZEPAM
  4. AZILECT [Suspect]
     Active Substance: RASAGILINE MESYLATE
     Indication: PARKINSON^S DISEASE
     Dates: start: 20160928
  5. SINEMET [Concomitant]
     Active Substance: CARBIDOPA\LEVODOPA
     Indication: PARKINSON^S DISEASE
  6. VITAMIN B2 [Concomitant]
     Active Substance: RIBOFLAVIN
  7. BAYER ASPIRIN [Concomitant]
     Active Substance: ASPIRIN
  8. TRAMADOL. [Concomitant]
     Active Substance: TRAMADOL
     Dosage: 50 MILLIGRAM DAILY;

REACTIONS (1)
  - Contraindicated product administered [Unknown]

NARRATIVE: CASE EVENT DATE: 20160928
